FAERS Safety Report 10376153 (Version 2)
Quarter: 2015Q3

REPORT INFORMATION
  Report Type: Spontaneous
  Country: US (occurrence: US)
  Receive Date: 20140811
  Receipt Date: 20150812
  Transmission Date: 20151125
  Serious: No
  Sender: FDA-Public Use
  Company Number: US-ASTRAZENECA-2013SE58625

PATIENT
  Sex: Female
  Weight: 78.9 kg

DRUGS (3)
  1. VITAMIN D AND CALCIUM [Concomitant]
  2. NABUMETONE. [Concomitant]
     Active Substance: NABUMETONE
     Indication: BONE PAIN
  3. ARIMIDEX [Suspect]
     Active Substance: ANASTROZOLE
     Indication: BREAST CANCER
     Route: 048
     Dates: start: 201001

REACTIONS (6)
  - Arthritis [Unknown]
  - Pain in extremity [Unknown]
  - Sleep disorder [Unknown]
  - Mycobacterium tuberculosis complex test positive [Unknown]
  - Fatigue [Unknown]
  - Arthralgia [Unknown]
